FAERS Safety Report 5994980-0 (Version None)
Quarter: 2008Q4

REPORT INFORMATION
  Report Type: 
  Country: None (occurrence: None)
  Receive Date: 20081210
  Receipt Date: 20081128
  Transmission Date: 20090506
  Serious: Yes (Hospitalization)
  Sender: FDA-Public Use
  Company Number: GXKR2008GB11358

PATIENT
  Age: 50 Year
  Sex: Male
  Weight: 65 kg

DRUGS (4)
  1. DOXYCYCLINE [Suspect]
     Indication: PROSTATITIS
     Dosage: ORAL
     Route: 048
     Dates: start: 20081020, end: 20081102
  2. TRIMETHOPRIM [Suspect]
     Indication: PROSTATITIS
     Dosage: ORAL
     Route: 048
     Dates: start: 20081020, end: 20081102
  3. DICLOFENAC (DICLOFENAC) [Concomitant]
  4. TAMSULOSIN HCL [Concomitant]

REACTIONS (8)
  - EYE PAIN [None]
  - OROPHARYNGEAL PAIN [None]
  - PHARYNGITIS [None]
  - RASH PRURITIC [None]
  - RHINORRHOEA [None]
  - SWOLLEN TONGUE [None]
  - URTICARIA [None]
  - UVULITIS [None]
